FAERS Safety Report 8543734-X (Version None)
Quarter: 2012Q3

REPORT INFORMATION
  Report Type: 
  Country: None (occurrence: None)
  Receive Date: 20120727
  Receipt Date: 20120719
  Transmission Date: 20120928
  Serious: Yes (Other)
  Sender: FDA-Public Use
  Company Number: US-JNJFOC-20120710217

PATIENT
  Sex: Male
  Weight: 84.37 kg

DRUGS (5)
  1. TRAZODONE HYDROCHLORIDE [Concomitant]
     Indication: HYPERSOMNIA
     Route: 048
     Dates: start: 20090101
  2. TRUVADA [Concomitant]
     Indication: HIV INFECTION
     Route: 048
  3. PREZISTA [Suspect]
     Indication: HIV INFECTION
     Route: 048
     Dates: start: 20111201
  4. NORVIR [Concomitant]
     Indication: HIV INFECTION
     Route: 048
  5. ALBUTEROL SULPHATE [Concomitant]
     Indication: ASTHMA
     Route: 065
     Dates: start: 20100101

REACTIONS (3)
  - WEIGHT INCREASED [None]
  - URINE OUTPUT DECREASED [None]
  - POLLAKIURIA [None]
